FAERS Safety Report 12865911 (Version 1)
Quarter: 2016Q4

REPORT INFORMATION
  Report Type: Report from Study
  Country: US (occurrence: US)
  Receive Date: 20161020
  Receipt Date: 20161020
  Transmission Date: 20170207
  Serious: Yes (Life-Threatening, Hospitalization)
  Sender: FDA-Public Use
  Company Number: US-EISAI MEDICAL RESEARCH-EC-2016-021389

PATIENT
  Age: 71 Year
  Sex: Male
  Weight: 63.5 kg

DRUGS (14)
  1. LOVENOX [Concomitant]
     Active Substance: ENOXAPARIN SODIUM
  2. ONDANSETRON [Concomitant]
     Active Substance: ONDANSETRON
  3. THIAMINE. [Concomitant]
     Active Substance: THIAMINE
  4. GLUCOSAMINE [Concomitant]
     Active Substance: GLUCOSAMINE
  5. ASPIRIN. [Concomitant]
     Active Substance: ASPIRIN
  6. LENVATINIB [Suspect]
     Active Substance: LENVATINIB
     Indication: ADENOCARCINOMA
     Route: 048
     Dates: start: 20160711, end: 20161012
  7. CARDURA [Concomitant]
     Active Substance: DOXAZOSIN MESYLATE
  8. PROTONIX [Concomitant]
     Active Substance: PANTOPRAZOLE SODIUM
  9. ZOCOR [Concomitant]
     Active Substance: SIMVASTATIN
  10. CENTRUM SILVER [Concomitant]
     Active Substance: MINERALS\VITAMINS
  11. ERIBULIN [Suspect]
     Active Substance: ERIBULIN
     Indication: BREAST CANCER METASTATIC
     Route: 041
     Dates: start: 20160711, end: 20161011
  12. DILAUDID [Concomitant]
     Active Substance: HYDROMORPHONE HYDROCHLORIDE
  13. NORCO [Concomitant]
     Active Substance: ACETAMINOPHEN\HYDROCODONE BITARTRATE
  14. IRON FORMULA [Concomitant]

REACTIONS (3)
  - Large intestine perforation [Recovering/Resolving]
  - Cholecystitis acute [Recovering/Resolving]
  - Sepsis [Recovering/Resolving]

NARRATIVE: CASE EVENT DATE: 20161013
